FAERS Safety Report 8035555-1 (Version None)
Quarter: 2012Q1

REPORT INFORMATION
  Report Type: 
  Country: None (occurrence: None)
  Receive Date: 20120110
  Receipt Date: 20120110
  Transmission Date: 20120608
  Serious: Yes (Disabling)
  Sender: FDA-Public Use
  Company Number: None

PATIENT
  Age: 30 Year
  Sex: Male
  Weight: 72.5755 kg

DRUGS (1)
  1. CIPROFLOXACIN [Suspect]
     Indication: URINARY TRACT INFECTION
     Dosage: 500MG 2XDAY MOUTH
     Route: 048
     Dates: start: 20091001

REACTIONS (6)
  - PAIN [None]
  - TOXICITY TO VARIOUS AGENTS [None]
  - ARTHROPATHY [None]
  - MUSCLE DISORDER [None]
  - RETINAL TEAR [None]
  - TENDON DISORDER [None]
